FAERS Safety Report 20436077 (Version 1)
Quarter: 2022Q1

REPORT INFORMATION
  Report Type: Spontaneous
  Country: QA (occurrence: QA)
  Receive Date: 20220207
  Receipt Date: 20220207
  Transmission Date: 20220423
  Serious: Yes (Hospitalization)
  Sender: FDA-Public Use
  Company Number: QA-SUN PHARMACEUTICAL INDUSTRIES LTD-2022RR-325841

PATIENT
  Age: 28 Year
  Sex: Male

DRUGS (7)
  1. LOPERAMIDE [Suspect]
     Active Substance: LOPERAMIDE
     Indication: Irritable bowel syndrome
     Dosage: UP TO 16 MG/D
     Route: 065
  2. SERTRALINE [Suspect]
     Active Substance: SERTRALINE HYDROCHLORIDE
     Indication: Somatic symptom disorder
     Dosage: 25 MILLIGRAM, DAILY
     Route: 065
  3. RIFAXIMIN [Suspect]
     Active Substance: RIFAXIMIN
     Indication: Irritable bowel syndrome
     Dosage: 500 MILLIGRAM, TID
  4. AMITRIPTYLINE [Suspect]
     Active Substance: AMITRIPTYLINE
     Indication: Abdominal pain
     Dosage: 10 MILLIGRAM, AT BEDTIME
     Route: 065
  5. AMITRIPTYLINE [Suspect]
     Active Substance: AMITRIPTYLINE
     Dosage: 25 MILLIGRAM, AT BEDTIME
     Route: 065
  6. AMITRIPTYLINE [Suspect]
     Active Substance: AMITRIPTYLINE
     Dosage: 35 MILLIGRAM, DAILY
     Route: 065
  7. AMITRIPTYLINE [Suspect]
     Active Substance: AMITRIPTYLINE
     Dosage: 50 MILLIGRAM
     Route: 065

REACTIONS (9)
  - Abdominal pain [Recovering/Resolving]
  - Abdominal distension [Recovering/Resolving]
  - Constipation [Recovering/Resolving]
  - Condition aggravated [Unknown]
  - Nausea [Unknown]
  - Dyspepsia [Unknown]
  - Diarrhoea [Unknown]
  - Dizziness [Recovered/Resolved]
  - Constipation [Recovering/Resolving]
